FAERS Safety Report 5450984-8 (Version None)
Quarter: 2007Q3

REPORT INFORMATION
  Report Type: 
  Country: None (occurrence: None)
  Receive Date: 20070911
  Receipt Date: 20070830
  Transmission Date: 20080115
  Serious: Yes (Death)
  Sender: FDA-Public Use
  Company Number: 160843ISR

PATIENT
  Age: 75 Year
  Sex: Male

DRUGS (1)
  1. AMLODIPINE [Suspect]
     Dosage: 1000 MG

REACTIONS (5)
  - ATRIOVENTRICULAR BLOCK FIRST DEGREE [None]
  - BRADYCARDIA [None]
  - HYPOTENSION [None]
  - OVERDOSE [None]
  - PACEMAKER GENERATED RHYTHM [None]
